FAERS Safety Report 9728710 (Version 1)
Quarter: 2013Q4

REPORT INFORMATION
  Report Type: Spontaneous
  Country: US (occurrence: US)
  Receive Date: 20131204
  Receipt Date: 20131204
  Transmission Date: 20140711
  Serious: No
  Sender: FDA-Public Use
  Company Number: US-PFIZER INC-2013345470

PATIENT
  Age: 48 Year
  Sex: 0

DRUGS (2)
  1. ENBREL [Suspect]
     Dosage: UNK
  2. XELJANZ [Suspect]
     Dosage: UNK

REACTIONS (9)
  - Weight increased [Unknown]
  - Thirst [Unknown]
  - Insomnia [Unknown]
  - Sinus disorder [Unknown]
  - Pruritus [Unknown]
  - Swelling [Unknown]
  - Rash [Unknown]
  - Therapeutic response decreased [Unknown]
  - Lymphadenopathy [Unknown]
